FAERS Safety Report 9919689 (Version 2)
Quarter: 2014Q1

REPORT INFORMATION
  Report Type: Spontaneous
  Country: NO (occurrence: NO)
  Receive Date: 20140224
  Receipt Date: 20140320
  Transmission Date: 20141002
  Serious: Yes (Death)
  Sender: FDA-Public Use
  Company Number: NO-BRISTOL-MYERS SQUIBB COMPANY-20202222

PATIENT
  Age: 90 Year
  Sex: Male

DRUGS (3)
  1. ELIQUIS [Suspect]
     Indication: THROMBOSIS PROPHYLAXIS
     Route: 048
     Dates: start: 20131126, end: 20140120
  2. METOPROLOL [Concomitant]
     Indication: ATRIAL FIBRILLATION
     Route: 048
  3. BURINEX [Concomitant]
     Indication: CARDIAC FAILURE
     Dosage: 1 TABLET TUESDAY, WEDNESDAY, THURSDAY
     Route: 048

REACTIONS (2)
  - Pulmonary embolism [Fatal]
  - Treatment failure [Fatal]
